FAERS Safety Report 12428544 (Version 1)
Quarter: 2016Q2

REPORT INFORMATION
  Report Type: Spontaneous
  Country: FR (occurrence: FR)
  Receive Date: 20160602
  Receipt Date: 20160602
  Transmission Date: 20160815
  Serious: Yes (Hospitalization)
  Sender: FDA-Public Use
  Company Number: FR-EISAI MEDICAL RESEARCH-EC-2016-017147

PATIENT
  Age: 63 Year
  Sex: Female
  Weight: 55 kg

DRUGS (8)
  1. DEROXAT [Concomitant]
     Active Substance: PAROXETINE HYDROCHLORIDE
     Indication: DEPRESSION
     Dates: start: 2015
  2. FYCOMPA [Suspect]
     Active Substance: PERAMPANEL
     Route: 048
     Dates: start: 20160505, end: 20160518
  3. KEPPRA [Suspect]
     Active Substance: LEVETIRACETAM
     Indication: EPILEPSY
     Dates: start: 2014, end: 20160418
  4. KEPPRA [Suspect]
     Active Substance: LEVETIRACETAM
     Dates: start: 20160419, end: 20160504
  5. KEPPRA [Suspect]
     Active Substance: LEVETIRACETAM
     Dates: start: 20160505, end: 20160518
  6. LYRICA [Concomitant]
     Active Substance: PREGABALIN
     Indication: EPILEPSY
     Dates: start: 2014
  7. FYCOMPA [Suspect]
     Active Substance: PERAMPANEL
     Indication: EPILEPSY
     Route: 048
     Dates: start: 20160419, end: 20160504
  8. DIHYDAN [Concomitant]
     Active Substance: PHENYTOIN
     Indication: EPILEPSY
     Dates: start: 2014

REACTIONS (5)
  - Persecutory delusion [Recovered/Resolved]
  - Aggression [Recovered/Resolved]
  - Crying [Recovered/Resolved]
  - Physical assault [Recovered/Resolved]
  - Irritability [Recovered/Resolved]

NARRATIVE: CASE EVENT DATE: 2016
